FAERS Safety Report 5798725-9 (Version None)
Quarter: 2008Q2

REPORT INFORMATION
  Report Type: 
  Country: None (occurrence: None)
  Receive Date: 20080630
  Receipt Date: 20080620
  Transmission Date: 20081010
  Serious: Yes (Hospitalization)
  Sender: FDA-Public Use
  Company Number: 009-C5013-08060535

PATIENT
  Age: 66 Year
  Sex: Male
  Weight: 70 kg

DRUGS (6)
  1. CC-5013 (LENALIDOMIDE) (CAPSULES) [Suspect]
     Indication: MULTIPLE MYELOMA
     Dosage: 25 MG, DAILY, ORAL
     Route: 048
     Dates: start: 20080312, end: 20080606
  2. CC-5013\PLACEBO (LENALIDOMIDE) (CAPSULES) [Suspect]
     Indication: MULTIPLE MYELOMA
     Dosage: ORAL
     Route: 048
     Dates: start: 20070312
  3. MELPHALAN (MELPHALAN) [Concomitant]
  4. PREDNISONE TAB [Concomitant]
  5. MELPHALAN (MELPHALAN) [Suspect]
     Indication: MULTIPLE MYELOMA
     Dates: start: 20070312, end: 20071116
  6. PREDNISONE TAB [Suspect]
     Indication: MULTIPLE MYELOMA
     Dates: start: 20070312, end: 20071116

REACTIONS (7)
  - ANGIOEDEMA [None]
  - BONE PAIN [None]
  - EYELID OEDEMA [None]
  - MUSCULOSKELETAL DISORDER [None]
  - RASH [None]
  - SWELLING [None]
  - URTICARIA [None]
